FAERS Safety Report 25377530 (Version 1)
Quarter: 2025Q2

REPORT INFORMATION
  Report Type: Spontaneous
  Country: US (occurrence: US)
  Receive Date: 20250530
  Receipt Date: 20250530
  Transmission Date: 20250716
  Serious: No
  Sender: APOTEX
  Company Number: US-APOTEX-2025AP007927

PATIENT
  Age: 10 Year
  Sex: Male

DRUGS (18)
  1. CLOBAZAM [Suspect]
     Active Substance: CLOBAZAM
     Indication: Febrile infection-related epilepsy syndrome
     Route: 065
  2. FOSPHENYTOIN [Suspect]
     Active Substance: FOSPHENYTOIN
     Indication: Febrile infection-related epilepsy syndrome
     Route: 065
  3. LACOSAMIDE [Suspect]
     Active Substance: LACOSAMIDE
     Indication: Febrile infection-related epilepsy syndrome
     Route: 065
  4. LEVETIRACETAM [Suspect]
     Active Substance: LEVETIRACETAM
     Indication: Febrile infection-related epilepsy syndrome
     Route: 065
  5. PERAMPANEL [Suspect]
     Active Substance: PERAMPANEL
     Indication: Febrile infection-related epilepsy syndrome
     Route: 065
  6. BRIVARACETAM [Suspect]
     Active Substance: BRIVARACETAM
     Indication: Febrile infection-related epilepsy syndrome
     Route: 065
  7. CENOBAMATE [Suspect]
     Active Substance: CENOBAMATE
     Indication: Febrile infection-related epilepsy syndrome
     Route: 065
  8. FELBAMATE [Suspect]
     Active Substance: FELBAMATE
     Indication: Febrile infection-related epilepsy syndrome
     Route: 065
  9. PHENOBARBITAL [Suspect]
     Active Substance: PHENOBARBITAL
     Indication: Febrile infection-related epilepsy syndrome
     Route: 065
  10. PENTOBARBITAL [Suspect]
     Active Substance: PENTOBARBITAL
     Indication: Febrile infection-related epilepsy syndrome
     Route: 042
  11. KETAMINE [Suspect]
     Active Substance: KETAMINE
     Indication: Febrile infection-related epilepsy syndrome
     Route: 042
  12. METHYLPREDNISOLONE [Concomitant]
     Active Substance: METHYLPREDNISOLONE
     Indication: Febrile infection-related epilepsy syndrome
     Route: 042
  13. HUMAN IMMUNOGLOBULIN G [Concomitant]
     Active Substance: HUMAN IMMUNOGLOBULIN G
     Indication: Febrile infection-related epilepsy syndrome
     Route: 042
  14. RITUXIMAB [Concomitant]
     Active Substance: RITUXIMAB
     Indication: Febrile infection-related epilepsy syndrome
     Route: 065
  15. ANAKINRA [Concomitant]
     Active Substance: ANAKINRA
     Indication: Febrile infection-related epilepsy syndrome
     Dosage: 4 MILLIGRAM/KILOGRAM, QD
     Route: 065
  16. ANAKINRA [Concomitant]
     Active Substance: ANAKINRA
     Dosage: 8 MILLIGRAM/KILOGRAM, QD
     Route: 065
  17. TOCILIZUMAB [Concomitant]
     Active Substance: TOCILIZUMAB
     Indication: Febrile infection-related epilepsy syndrome
     Dosage: 8 MILLIGRAM/KILOGRAM, QD
     Route: 065
  18. MIDAZOLAM [Concomitant]
     Active Substance: MIDAZOLAM
     Indication: Febrile infection-related epilepsy syndrome
     Route: 042

REACTIONS (1)
  - Transaminases increased [Unknown]
